FAERS Safety Report 6876716-4 (Version None)
Quarter: 2010Q3

REPORT INFORMATION
  Report Type: 
  Country: None (occurrence: None)
  Receive Date: 20100727
  Receipt Date: 20100723
  Transmission Date: 20110219
  Serious: Yes (Death, Hospitalization)
  Sender: FDA-Public Use
  Company Number: FR-WYE-G06370610

PATIENT
  Sex: Female
  Weight: 55.1 kg

DRUGS (5)
  1. GEMTUZUMAB OZOGAMICIN [Suspect]
     Indication: ACUTE MYELOID LEUKAEMIA
     Dosage: 5 MG TOTAL DAILY
     Route: 042
     Dates: start: 20100526, end: 20100601
  2. VFEND [Concomitant]
     Dosage: 400 MG TOTAL DAILY
     Route: 048
     Dates: start: 20100702
  3. PIPERACILLIN AND TAZOBACTAM [Concomitant]
     Dosage: 4 G TOTAL DAILY
     Route: 042
     Dates: start: 20100702, end: 20100705
  4. CYTARABINE [Suspect]
     Indication: ACUTE MYELOID LEUKAEMIA
     Dosage: 330 MG TOTAL DAILY
     Route: 042
     Dates: start: 20100526, end: 20100601
  5. DAUNORUBICIN HCL [Suspect]
     Indication: ACUTE MYELOID LEUKAEMIA
     Dosage: 100 MG TOTAL DAILY
     Route: 042
     Dates: start: 20100526, end: 20100528

REACTIONS (3)
  - BONE MARROW FAILURE [None]
  - SUBDURAL HAEMATOMA [None]
  - THROMBOCYTOPENIA [None]
